FAERS Safety Report 4970347-9 (Version None)
Quarter: 2006Q2

REPORT INFORMATION
  Report Type: 
  Country: None (occurrence: None)
  Receive Date: 20060406
  Receipt Date: 20060328
  Transmission Date: 20061013
  Serious: Yes (Death, Hospitalization)
  Sender: FDA-Public Use
  Company Number: E044-318-3768

PATIENT
  Age: 77 Year
  Sex: Male
  Weight: 87 kg

DRUGS (10)
  1. DONEPEZIL HCL [Suspect]
     Indication: DEMENTIA
     Dosage: 5 MG, 1 IN 1 D, ORAL; 10 MG, 1 IN 1 D, ORAL
     Route: 048
     Dates: start: 20050316, end: 20050412
  2. DONEPEZIL HCL [Suspect]
     Indication: DEMENTIA
     Dosage: 5 MG, 1 IN 1 D, ORAL; 10 MG, 1 IN 1 D, ORAL
     Route: 048
     Dates: start: 20050413, end: 20060227
  3. DONEPEZIL HCL [Suspect]
     Indication: DEMENTIA
     Dosage: DOUBLEBLIND, 1 IN 1 D, ORAL
     Route: 048
     Dates: start: 20040920, end: 20050315
  4. NOVOPROVASTATIN [Concomitant]
  5. NOVO-METOPROLOL [Concomitant]
  6. QUETIAPINE FUMARATE [Concomitant]
  7. POTASSIUM CHLORIDE [Concomitant]
  8. DILTIAZEM (DILITIAZEM) [Concomitant]
  9. ISOSORBIDE MONONITRATE [Concomitant]
  10. NOVOSEMIDE (FUROSEMIDE) [Concomitant]

REACTIONS (4)
  - ATRIAL FIBRILLATION [None]
  - CARDIAC ARREST [None]
  - FALL [None]
  - HYPOAESTHESIA [None]
